FAERS Safety Report 25235073 (Version 3)
Quarter: 2025Q2

REPORT INFORMATION
  Report Type: Spontaneous
  Country: US (occurrence: US)
  Receive Date: 20250424
  Receipt Date: 20250620
  Transmission Date: 20250716
  Serious: Yes (Other)
  Sender: PFIZER
  Company Number: US-PFIZER INC-PV202500048333

PATIENT
  Age: 42 Year
  Sex: Female

DRUGS (1)
  1. DEPO-PROVERA [Suspect]
     Active Substance: MEDROXYPROGESTERONE ACETATE
     Indication: Contraception
     Dosage: UNK, EVERY 3 MONTHS
     Route: 030
     Dates: start: 201703, end: 201802

REACTIONS (1)
  - Meningioma benign [Unknown]

NARRATIVE: CASE EVENT DATE: 20230405
